FAERS Safety Report 20940159 (Version 2)
Quarter: 2022Q2

REPORT INFORMATION
  Report Type: Spontaneous
  Country: IL (occurrence: IL)
  Receive Date: 20220609
  Receipt Date: 20220630
  Transmission Date: 20220721
  Serious: Yes (Other)
  Sender: FDA-Public Use
  Company Number: IL-UCBSA-2022032101

PATIENT
  Age: 23 Year
  Sex: Female

DRUGS (2)
  1. KEPPRA [Suspect]
     Active Substance: LEVETIRACETAM
     Indication: Product used for unknown indication
     Dosage: UNK
     Dates: end: 202203
  2. BRIVARACETAM [Suspect]
     Active Substance: BRIVARACETAM
     Indication: Product used for unknown indication
     Dosage: 100 MILLIGRAM, ONCE DAILY (QD)
     Dates: start: 20220322, end: 2022

REACTIONS (3)
  - Leukopenia [Unknown]
  - Neutropenia [Unknown]
  - Product use issue [Unknown]

NARRATIVE: CASE EVENT DATE: 20220301
